FAERS Safety Report 8389060-3 (Version None)
Quarter: 2012Q2

REPORT INFORMATION
  Report Type: 
  Country: None (occurrence: None)
  Receive Date: 20120528
  Receipt Date: 20120522
  Transmission Date: 20120825
  Serious: Yes (Death, Hospitalization)
  Sender: FDA-Public Use
  Company Number: PHHY2010JP46910

PATIENT
  Sex: Male

DRUGS (3)
  1. AFINITOR [Suspect]
     Indication: METASTATIC RENAL CELL CARCINOMA
     Dosage: 10 MG DAILY
     Route: 048
     Dates: start: 20100518, end: 20100711
  2. AFINITOR [Suspect]
     Dosage: 5MG DAILY
     Route: 048
     Dates: start: 20100721
  3. TRICHLORMETHIAZIDE [Concomitant]
     Indication: METASTATIC RENAL CELL CARCINOMA
     Dosage: 2 MG, UNK
     Route: 048
     Dates: start: 20100718

REACTIONS (7)
  - LYMPHANGIOSIS CARCINOMATOSA [None]
  - PLEURAL EFFUSION [None]
  - NEOPLASM MALIGNANT [None]
  - HAEMATURIA [None]
  - GAMMA-GLUTAMYLTRANSFERASE INCREASED [None]
  - HAEMOGLOBIN DECREASED [None]
  - ASCITES [None]
